FAERS Safety Report 8577185-9 (Version None)
Quarter: 2012Q3

REPORT INFORMATION
  Report Type: 
  Country: None (occurrence: None)
  Receive Date: 20120807
  Receipt Date: 20120731
  Transmission Date: 20120928
  Serious: Yes (Other)
  Sender: FDA-Public Use
  Company Number: JP-BAXTER-2012BAX013398

PATIENT

DRUGS (2)
  1. BUMINATE 5% [Suspect]
     Indication: HEPATORENAL SYNDROME
     Route: 042
  2. GLYPRESSIN [Suspect]
     Indication: HEPATORENAL SYNDROME
     Route: 042

REACTIONS (2)
  - UPPER GASTROINTESTINAL HAEMORRHAGE [None]
  - CARDIAC FAILURE CONGESTIVE [None]
